FAERS Safety Report 23544738 (Version 2)
Quarter: 2024Q1

REPORT INFORMATION
  Report Type: Spontaneous
  Country: US (occurrence: US)
  Receive Date: 20240220
  Receipt Date: 20240312
  Transmission Date: 20240410
  Serious: Yes (Death, Other)
  Sender: FDA-Public Use
  Company Number: US-PFIZER INC-202400042829

PATIENT
  Age: 87 Year
  Sex: Female
  Weight: 59.42 kg

DRUGS (2)
  1. ESTRING [Suspect]
     Active Substance: ESTRADIOL
     Indication: Atrophic vulvovaginitis
     Dosage: 2MG ONE RING EVERY THREE MONTHS
     Dates: start: 20220525, end: 202210
  2. ESTRING [Suspect]
     Active Substance: ESTRADIOL
     Dosage: 2MG ONE RING EVERY THREE MONTHS
     Dates: start: 20230411

REACTIONS (1)
  - Death [Fatal]

NARRATIVE: CASE EVENT DATE: 20240122
